FAERS Safety Report 9649909 (Version 2)
Quarter: 2013Q4

REPORT INFORMATION
  Report Type: Spontaneous
  Country: US (occurrence: US)
  Receive Date: 20131028
  Receipt Date: 20131028
  Transmission Date: 20140711
  Serious: No
  Sender: FDA-Public Use
  Company Number: US-PURDUE-USA-2013-0105805

PATIENT
  Sex: Female

DRUGS (4)
  1. OXYCONTIN (NDA 22-272) [Suspect]
     Indication: PAIN
     Dosage: 240 MG, DAILY
     Route: 048
  2. OXYCONTIN (NDA 22-272) [Suspect]
     Dosage: 480 MG, DAILY
     Route: 048
  3. CYMBALTA [Concomitant]
     Indication: PRODUCT USED FOR UNKNOWN INDICATION
     Dosage: 60 MG, DAILY
     Dates: start: 201306
  4. IBUPROFEN [Concomitant]
     Indication: ANTIINFLAMMATORY THERAPY
     Dosage: 400 MG, Q8H

REACTIONS (1)
  - Pain [Unknown]
